FAERS Safety Report 24190944 (Version 1)
Quarter: 2024Q3

REPORT INFORMATION
  Report Type: Spontaneous
  Country: US (occurrence: US)
  Receive Date: 20240808
  Receipt Date: 20240808
  Transmission Date: 20241017
  Serious: Yes (Death, Hospitalization, Other)
  Sender: JOHNSON AND JOHNSON
  Company Number: US-JNJFOC-20240803666

PATIENT
  Age: 79 Year
  Sex: Male
  Weight: 54.3 kg

DRUGS (3)
  1. CARVYKTI [Suspect]
     Active Substance: CILTACABTAGENE AUTOLEUCEL
     Indication: Plasma cell myeloma
     Dosage: 1X10E8
     Route: 042
     Dates: start: 20240612, end: 20240612
  2. FLUDARABINE [Suspect]
     Active Substance: FLUDARABINE PHOSPHATE
     Indication: Plasma cell myeloma
     Route: 065
     Dates: start: 20240607, end: 20240609
  3. CYCLOPHOSPHAMIDE [Suspect]
     Active Substance: CYCLOPHOSPHAMIDE
     Indication: Plasma cell myeloma
     Route: 065
     Dates: start: 20240607, end: 20240609

REACTIONS (10)
  - Pancytopenia [Fatal]
  - Mucosal inflammation [Fatal]
  - Septic shock [Fatal]
  - Plasma cell myeloma [Fatal]
  - Immune effector cell-associated HLH-like syndrome [Fatal]
  - Cytokine release syndrome [Unknown]
  - Failure to thrive [Unknown]
  - Tooth abscess [Unknown]
  - Oral candidiasis [Unknown]
  - Hyperglycaemia [Unknown]

NARRATIVE: CASE EVENT DATE: 20240628
